FAERS Safety Report 8063144-1 (Version None)
Quarter: 2012Q1

REPORT INFORMATION
  Report Type: 
  Country: None (occurrence: None)
  Receive Date: 20120123
  Receipt Date: 20120113
  Transmission Date: 20120608
  Serious: Yes (Hospitalization, Congenital Anomaly, Other)
  Sender: FDA-Public Use
  Company Number: US-PFIZER INC-2011158624

PATIENT
  Sex: Male
  Weight: 3.3 kg

DRUGS (1)
  1. EFFEXOR XR [Suspect]
     Dosage: 75 MG, 1X/DAY
     Route: 064
     Dates: start: 20100101

REACTIONS (14)
  - TRICUSPID VALVE INCOMPETENCE [None]
  - PATENT DUCTUS ARTERIOSUS [None]
  - ENTEROCOCCAL BACTERAEMIA [None]
  - CHYLOTHORAX [None]
  - OTITIS MEDIA [None]
  - ATELECTASIS [None]
  - MATERNAL EXPOSURE TIMING UNSPECIFIED [None]
  - CONGENITAL PULMONARY VALVE ATRESIA [None]
  - ATRIAL SEPTAL DEFECT [None]
  - PULMONARY VALVE STENOSIS [None]
  - GASTROOESOPHAGEAL REFLUX DISEASE [None]
  - PULMONARY ARTERY ATRESIA [None]
  - HEART DISEASE CONGENITAL [None]
  - HYPOPLASTIC RIGHT HEART SYNDROME [None]
